FAERS Safety Report 4281680-0 (Version None)
Quarter: 2004Q1

REPORT INFORMATION
  Report Type: 
  Country: None (occurrence: None)
  Receive Date: 20040128
  Receipt Date: 20040118
  Transmission Date: 20041129
  Serious: Yes (Life-Threatening)
  Sender: FDA-Public Use
  Company Number: 2004195121PK

PATIENT
  Age: 73 Year
  Sex: Male

DRUGS (6)
  1. SOLU-CORTEF [Suspect]
     Indication: RESPIRATORY TRACT INFECTION
     Dosage: 250 MG, STAT, IV
     Route: 042
     Dates: start: 20031126, end: 20031126
  2. LASORIDE [Concomitant]
  3. ISMO [Concomitant]
  4. DISPRIN [Concomitant]
  5. AMLODIPINE [Concomitant]
  6. RULID [Concomitant]

REACTIONS (1)
  - DYSPNOEA [None]
